FAERS Safety Report 9320291 (Version 9)
Quarter: 2014Q2

REPORT INFORMATION
  Report Type: Report from Study
  Country: AU (occurrence: AU)
  Receive Date: 20130523
  Receipt Date: 20140613
  Transmission Date: 20141212
  Serious: Yes (Hospitalization, Other)
  Sender: FDA-Public Use
  Company Number: AU-ACTELION-A-CH2012-75715

PATIENT
  Age: 26 Year
  Sex: Female
  Weight: 65 kg

DRUGS (13)
  1. TRACLEER [Suspect]
     Indication: PULMONARY ARTERIAL HYPERTENSION
     Dosage: 125 MG, BID
     Route: 048
     Dates: start: 2002, end: 20121129
  2. TRACLEER [Suspect]
     Dosage: 62.5 MG, BID
     Route: 048
     Dates: start: 20020726
  3. TRACLEER [Suspect]
     Dosage: 62.5 MG, BID
     Route: 048
     Dates: start: 20130228, end: 20130314
  4. AMIODARONE [Suspect]
     Dosage: 200 MG, QD
     Dates: start: 2002, end: 20130318
  5. AMIODARONE [Suspect]
     Dosage: 400 MG, OD
     Dates: start: 20001231
  6. AMIODARONE [Suspect]
     Dosage: UNK
     Dates: start: 1997
  7. FLECAINIDE [Concomitant]
     Dosage: 50 MG, OD
  8. FOLIC ACID [Concomitant]
     Dosage: 500 ?G, UNK
  9. LAMOTRIGINE [Concomitant]
     Dosage: 50 MG, BID
     Dates: start: 20040219
  10. THYROXINE [Concomitant]
     Dosage: 50 ?G, UNK
  11. SILDENAFIL [Concomitant]
     Dosage: 20 MG, TID
  12. EPOPROSTENOL [Concomitant]
     Dosage: 3000 ?G/ML, UNK
     Route: 042
  13. WARFARIN [Concomitant]
     Dosage: UNK
     Dates: start: 2000, end: 20130325

REACTIONS (22)
  - Acute hepatic failure [Recovering/Resolving]
  - Autoimmune hepatitis [Recovering/Resolving]
  - Drug-induced liver injury [Recovering/Resolving]
  - Hepatitis cholestatic [Recovering/Resolving]
  - Biopsy liver abnormal [Recovering/Resolving]
  - Aspartate aminotransferase increased [Recovering/Resolving]
  - Alanine aminotransferase increased [Recovering/Resolving]
  - Bilirubin conjugated increased [Recovering/Resolving]
  - Blood alkaline phosphatase increased [Recovering/Resolving]
  - Blood bilirubin increased [Recovering/Resolving]
  - Blood lactate dehydrogenase increased [Recovering/Resolving]
  - Gamma-glutamyltransferase increased [Recovering/Resolving]
  - Staphylococcal skin infection [Unknown]
  - Hypophagia [Recovering/Resolving]
  - Nausea [Recovering/Resolving]
  - Vomiting [Recovering/Resolving]
  - Abdominal pain [Recovering/Resolving]
  - Pruritus [Recovering/Resolving]
  - Jaundice [Recovering/Resolving]
  - Chromaturia [Recovering/Resolving]
  - Malaise [Recovering/Resolving]
  - Ascites [Recovering/Resolving]
